FAERS Safety Report 6587164-9 (Version None)
Quarter: 2010Q1

REPORT INFORMATION
  Report Type: 
  Country: None (occurrence: None)
  Receive Date: 20100217
  Receipt Date: 20090508
  Transmission Date: 20100710
  Serious: No
  Sender: FDA-Public Use
  Company Number: US-ALLERGAN-0905918US

PATIENT
  Age: 67 Year
  Sex: Female

DRUGS (6)
  1. BOTOX COSMETIC [Suspect]
     Indication: SKIN WRINKLING
     Dosage: 30 UNITS, SINGLE
     Route: 030
     Dates: start: 20090429, end: 20090429
  2. TOPROL-XL [Concomitant]
     Dosage: 200 MG, QD
  3. PROCARDIA [Concomitant]
  4. WARFARIN SODIUM [Concomitant]
  5. FLECAINIDE ACETATE [Concomitant]
  6. BENICAR [Concomitant]

REACTIONS (4)
  - HYPOAESTHESIA FACIAL [None]
  - POSTNASAL DRIP [None]
  - PRODUCT TASTE ABNORMAL [None]
  - SENSATION OF FOREIGN BODY [None]
